FAERS Safety Report 17344259 (Version 1)
Quarter: 2020Q1

REPORT INFORMATION
  Report Type: Report from Study
  Country: US (occurrence: US)
  Receive Date: 20200129
  Receipt Date: 20200129
  Transmission Date: 20200409
  Serious: No
  Sender: FDA-Public Use
  Company Number: NVSC2020US022285

PATIENT
  Sex: Female

DRUGS (1)
  1. ENTRESTO [Suspect]
     Active Substance: SACUBITRIL\VALSARTAN
     Indication: BLOOD PRESSURE ABNORMAL
     Dosage: 50 MG (24/26 MG), BID
     Route: 048
     Dates: start: 20200126

REACTIONS (4)
  - Pollakiuria [Unknown]
  - Insomnia [Unknown]
  - Thirst [Unknown]
  - Fatigue [Unknown]
